FAERS Safety Report 10082419 (Version 1)
Quarter: 2014Q2

REPORT INFORMATION
  Report Type: Spontaneous
  Country: FR (occurrence: None)
  Receive Date: 20140410
  Receipt Date: 20140410
  Transmission Date: 20141212
  Serious: Yes (Disabling, Other)
  Sender: FDA-Public Use
  Company Number: SYM-2013-08237

PATIENT
  Age: 60 Year
  Sex: Male
  Weight: 65 kg

DRUGS (3)
  1. TARGRETIN (BEXAROENE) (CAPSULE) (BEXAROTENE) [Suspect]
     Indication: MYCOSIS FUNGOIDES
     Route: 048
     Dates: start: 201109, end: 201110
  2. LEVOTHYROX (LEVOTHYROXINE SODIUM) [Concomitant]
  3. LIPANTHYL 67 (FENOFIBRATE) [Concomitant]

REACTIONS (7)
  - Acne [None]
  - Hypothyroidism [None]
  - Asthenia [None]
  - Depression [None]
  - Apathy [None]
  - Haematospermia [None]
  - Dyspepsia [None]
